FAERS Safety Report 24334826 (Version 2)
Quarter: 2024Q4

REPORT INFORMATION
  Report Type: Spontaneous
  Country: US (occurrence: US)
  Receive Date: 20240918
  Receipt Date: 20241021
  Transmission Date: 20250115
  Serious: No
  Sender: BRISTOL-MYERS SQUIBB COMPANY
  Company Number: US-BRISTOL-MYERS SQUIBB COMPANY-2024-148298

PATIENT
  Age: 75 Year
  Sex: Female
  Weight: 93.89 kg

DRUGS (1)
  1. POMALYST [Suspect]
     Active Substance: POMALIDOMIDE
     Indication: Plasma cell myeloma
     Route: 048

REACTIONS (5)
  - Asthenia [Unknown]
  - Constipation [Unknown]
  - Blood glucose decreased [Unknown]
  - Abdominal pain upper [Unknown]
  - Treatment noncompliance [Unknown]
